FAERS Safety Report 8430533-2 (Version None)
Quarter: 2012Q2

REPORT INFORMATION
  Report Type: 
  Country: None (occurrence: None)
  Receive Date: 20120612
  Receipt Date: 20120607
  Transmission Date: 20120825
  Serious: Yes (Other)
  Sender: FDA-Public Use
  Company Number: US-VIIV HEALTHCARE LIMITED-A0978954A

PATIENT
  Age: 30 Year
  Sex: Female

DRUGS (2)
  1. LOPINAVIR AND RITONAVIR [Suspect]
     Indication: HIV INFECTION
     Dosage: 4MGD PER DAY
     Route: 048
  2. TRIZIVIR [Suspect]
     Indication: HIV INFECTION
     Dosage: 750MGD PER DAY
     Route: 048

REACTIONS (2)
  - ABORTION INDUCED [None]
  - MATERNAL EXPOSURE DURING PREGNANCY [None]
